FAERS Safety Report 5389536-7 (Version None)
Quarter: 2007Q3

REPORT INFORMATION
  Report Type: 
  Country: None (occurrence: None)
  Receive Date: 20070717
  Receipt Date: 20070705
  Transmission Date: 20080115
  Serious: Yes (Other)
  Sender: FDA-Public Use
  Company Number: IE-PFIZER INC-2007006034

PATIENT
  Age: 33 Year
  Sex: Male
  Weight: 102 kg

DRUGS (10)
  1. LYRICA [Suspect]
     Indication: BACK PAIN
     Route: 048
  2. AMITRIPTYLINE HCL [Concomitant]
  3. TRAMADOL HCL [Concomitant]
  4. ANTIHYPERTENSIVES [Concomitant]
  5. DRUG, UNSPECIFIED [Concomitant]
  6. OXYCONTIN [Concomitant]
     Route: 048
  7. NAPROXEN [Concomitant]
     Route: 048
  8. QVAR 40 [Concomitant]
     Route: 048
  9. NASONEX [Concomitant]
     Route: 048
  10. LISINOPRIL [Concomitant]
     Route: 048

REACTIONS (6)
  - ANAEMIA [None]
  - HAEMOGLOBIN DECREASED [None]
  - MEAN CELL VOLUME DECREASED [None]
  - PANCYTOPENIA [None]
  - PLATELET COUNT DECREASED [None]
  - WHITE BLOOD CELL COUNT DECREASED [None]
